FAERS Safety Report 6836633-2 (Version None)
Quarter: 2010Q3

REPORT INFORMATION
  Report Type: 
  Country: None (occurrence: None)
  Receive Date: 20100713
  Receipt Date: 20100707
  Transmission Date: 20110219
  Serious: Yes (Hospitalization)
  Sender: FDA-Public Use
  Company Number: PHHY2010JP44815

PATIENT
  Age: 59 Year
  Sex: Female

DRUGS (3)
  1. COMTAN [Suspect]
     Indication: PARKINSON'S DISEASE
     Dosage: UNK
  2. CARBIDOPA AND LEVODOPA [Concomitant]
     Indication: PARKINSON'S DISEASE
     Dosage: 250 MG, UNK
  3. PRAMIVERINE HYDROCHLORIDE [Concomitant]
     Indication: PARKINSON'S DISEASE
     Dosage: UNK

REACTIONS (3)
  - DRUG EFFECT DECREASED [None]
  - DYSKINESIA [None]
  - ON AND OFF PHENOMENON [None]
